FAERS Safety Report 7836922-9 (Version None)
Quarter: 2011Q4

REPORT INFORMATION
  Report Type: 
  Country: None (occurrence: None)
  Receive Date: 20111024
  Receipt Date: 20101222
  Transmission Date: 20120403
  Serious: No
  Sender: FDA-Public Use
  Company Number: US-ABBOTT-10P-163-0693971-00

PATIENT
  Sex: Female
  Weight: 69.008 kg

DRUGS (2)
  1. FERROUS SULFATE TAB [Concomitant]
     Indication: BLOOD IRON DECREASED
  2. LUPRON DEPOT [Suspect]
     Indication: UTERINE LEIOMYOMA
     Dates: start: 20101030

REACTIONS (5)
  - HEARING IMPAIRED [None]
  - MESENTERIC PANNICULITIS [None]
  - ABDOMINAL PAIN [None]
  - PELVIC PAIN [None]
  - INFLUENZA LIKE ILLNESS [None]
